FAERS Safety Report 5151184-1 (Version None)
Quarter: 2006Q4

REPORT INFORMATION
  Report Type: 
  Country: None (occurrence: None)
  Receive Date: 20061114
  Receipt Date: 20061114
  Transmission Date: 20070319
  Serious: Yes (Other)
  Sender: FDA-Public Use
  Company Number: None

PATIENT
  Sex: Female
  Weight: 61.6892 kg

DRUGS (1)
  1. BONIVA [Suspect]
     Indication: OSTEOPOROSIS PROPHYLAXIS
     Dosage: 1   ONCE A MONTH   PO
     Route: 048
     Dates: start: 20060916, end: 20061023

REACTIONS (8)
  - ARTHRALGIA [None]
  - DIARRHOEA [None]
  - DYSPEPSIA [None]
  - GASTRIC DISORDER [None]
  - IMPAIRED WORK ABILITY [None]
  - INFLUENZA LIKE ILLNESS [None]
  - MYALGIA [None]
  - PYREXIA [None]
